FAERS Safety Report 25821412 (Version 2)
Quarter: 2025Q4

REPORT INFORMATION
  Report Type: Spontaneous
  Country: JP (occurrence: JP)
  Receive Date: 20250919
  Receipt Date: 20251112
  Transmission Date: 20260118
  Serious: Yes (Hospitalization)
  Sender: ASTELLAS
  Company Number: JP-ASTELLAS-2023JP004552

PATIENT
  Age: 70 Year
  Sex: Female
  Weight: 42 kg

DRUGS (7)
  1. PADCEV [Suspect]
     Active Substance: ENFORTUMAB VEDOTIN-EJFV
     Indication: Ureteric cancer
     Dosage: 1.25 MG/KG (52 MG), TWICE A MONTH
     Route: 042
     Dates: start: 20230228, end: 20230307
  2. PADCEV [Suspect]
     Active Substance: ENFORTUMAB VEDOTIN-EJFV
     Dosage: 1.0 MG/KG (42 MG), TWICE A MONTH
     Route: 042
     Dates: start: 20230404, end: 20230411
  3. PADCEV [Suspect]
     Active Substance: ENFORTUMAB VEDOTIN-EJFV
     Dosage: 32 MG, ONCE WEEKLY
     Route: 042
     Dates: start: 20230425, end: 20230425
  4. Ethyl icosapentate tablets [Concomitant]
     Indication: Dyslipidaemia
     Route: 048
  5. Parmodia tablets [Concomitant]
     Indication: Dyslipidaemia
     Route: 048
  6. Topiloric tablets [Concomitant]
     Indication: Hyperuricaemia
     Route: 048
  7. CLOPIDOGREL [Concomitant]
     Active Substance: CLOPIDOGREL BISULFATE
     Indication: Carotid arteriosclerosis
     Route: 048

REACTIONS (1)
  - Superficial inflammatory dermatosis [Recovered/Resolved]

NARRATIVE: CASE EVENT DATE: 20230307
